FAERS Safety Report 6415186-7 (Version None)
Quarter: 2009Q4

REPORT INFORMATION
  Report Type: 
  Country: None (occurrence: None)
  Receive Date: 20091027
  Receipt Date: 20091019
  Transmission Date: 20100525
  Serious: Yes (Hospitalization, Other)
  Sender: FDA-Public Use
  Company Number: US-BAYER-200932288NA

PATIENT
  Age: 43 Year
  Sex: Female
  Weight: 108 kg

DRUGS (4)
  1. YAZ [Suspect]
     Indication: CONTRACEPTION
     Route: 048
     Dates: start: 20080601, end: 20081201
  2. FLEXERIL [Concomitant]
     Indication: MUSCLE SPASMS
  3. REBIF [Concomitant]
     Indication: MULTIPLE SCLEROSIS
     Route: 058
     Dates: start: 20080826
  4. REBIF [Concomitant]
     Route: 058
     Dates: start: 20090724

REACTIONS (9)
  - ANTEPARTUM HAEMORRHAGE [None]
  - BACK PAIN [None]
  - CHEST PAIN [None]
  - CONVULSION [None]
  - DYSPNOEA [None]
  - MUSCLE SPASMS [None]
  - PREGNANCY ON ORAL CONTRACEPTIVE [None]
  - PULMONARY EMBOLISM [None]
  - URINARY TRACT INFECTION [None]
